FAERS Safety Report 9492499 (Version 2)
Quarter: 2013Q3

REPORT INFORMATION
  Report Type: Spontaneous
  Country: IE (occurrence: IE)
  Receive Date: 20130830
  Receipt Date: 20130905
  Transmission Date: 20140515
  Serious: Yes (Other)
  Sender: FDA-Public Use
  Company Number: IE-JNJFOC-20130815592

PATIENT
  Sex: Female

DRUGS (2)
  1. LYRINEL [Suspect]
     Indication: POLLAKIURIA
     Route: 048
     Dates: start: 20130527
  2. OXYBUTYNIN [Suspect]
     Indication: POLLAKIURIA
     Route: 048
     Dates: start: 20130801

REACTIONS (4)
  - Abdominal distension [Recovered/Resolved]
  - Urinary retention [Recovered/Resolved]
  - Drug ineffective [Recovered/Resolved]
  - Product substitution issue [Recovered/Resolved]
